FAERS Safety Report 12379758 (Version 2)
Quarter: 2016Q2

REPORT INFORMATION
  Report Type: Report from Study
  Country: GB (occurrence: GB)
  Receive Date: 20160518
  Receipt Date: 20160527
  Transmission Date: 20160815
  Serious: Yes (Hospitalization, Other)
  Sender: FDA-Public Use
  Company Number: GB-AMGEN-GBRSL2016044883

PATIENT
  Age: 79 Year
  Sex: Female
  Weight: 66 kg

DRUGS (1)
  1. PROLIA [Suspect]
     Active Substance: DENOSUMAB
     Indication: OSTEOPOROSIS
     Dosage: 60 MG/ML, Q6MO
     Route: 058
     Dates: start: 201404, end: 201505

REACTIONS (3)
  - Cholelithiasis [Unknown]
  - Cholangitis infective [Recovered/Resolved]
  - Bile duct obstruction [Unknown]

NARRATIVE: CASE EVENT DATE: 20150430
